FAERS Safety Report 10185283 (Version 1)
Quarter: 2014Q2

REPORT INFORMATION
  Report Type: Spontaneous
  Country: US (occurrence: US)
  Receive Date: 20140521
  Receipt Date: 20140521
  Transmission Date: 20141212
  Serious: No
  Sender: FDA-Public Use
  Company Number: US-PFIZER INC-2014137260

PATIENT
  Age: 75 Year
  Sex: Female

DRUGS (4)
  1. SUTENT [Suspect]
     Indication: RENAL CANCER
     Dosage: 50 MG, UNK
     Dates: start: 20140428
  2. LEVOTHYROXINE SODIUM [Concomitant]
     Dosage: UNK
  3. NAPROXEN [Concomitant]
     Dosage: UNK
  4. BAYER ASPIRIN [Concomitant]
     Dosage: UNK

REACTIONS (6)
  - Diarrhoea [Unknown]
  - Stomatitis [Unknown]
  - Chills [Unknown]
  - Pyrexia [Unknown]
  - Hypertension [Unknown]
  - Laboratory test abnormal [Unknown]
